FAERS Safety Report 5223050-4 (Version None)
Quarter: 2007Q1

REPORT INFORMATION
  Report Type: 
  Country: None (occurrence: None)
  Receive Date: 20070129
  Receipt Date: 20070123
  Transmission Date: 20070707
  Serious: Yes (Hospitalization)
  Sender: FDA-Public Use
  Company Number: JP-MERCK-0609USA02258

PATIENT
  Age: 55 Year
  Sex: Male
  Weight: 51 kg

DRUGS (3)
  1. PRIMAXIN [Suspect]
     Indication: INFECTION
     Route: 041
     Dates: start: 20060825, end: 20060902
  2. ZYVOX [Suspect]
     Indication: INFECTION
     Route: 042
     Dates: start: 20060830, end: 20060905
  3. MICAFUNGIN SODIUM [Suspect]
     Indication: INFECTION
     Route: 042
     Dates: start: 20060830, end: 20060905

REACTIONS (2)
  - CONVULSION [None]
  - INTRACRANIAL VENOUS SINUS THROMBOSIS [None]
